FAERS Safety Report 23569084 (Version 6)
Quarter: 2024Q3

REPORT INFORMATION
  Report Type: Spontaneous
  Country: US (occurrence: US)
  Receive Date: 20240227
  Receipt Date: 20240827
  Transmission Date: 20241016
  Serious: No
  Sender: BRISTOL MYERS SQUIBB
  Company Number: US-BRISTOL-MYERS SQUIBB COMPANY-2024-030945

PATIENT
  Age: 81 Year
  Sex: Female

DRUGS (6)
  1. POMALYST [Suspect]
     Active Substance: POMALIDOMIDE
     Indication: Osteoporosis
     Route: 048
     Dates: start: 20240126
  2. POMALYST [Suspect]
     Active Substance: POMALIDOMIDE
     Route: 048
     Dates: start: 20240126
  3. POMALYST [Suspect]
     Active Substance: POMALIDOMIDE
     Route: 048
     Dates: start: 20240126
  4. POMALYST [Suspect]
     Active Substance: POMALIDOMIDE
     Route: 048
  5. POMALYST [Suspect]
     Active Substance: POMALIDOMIDE
     Route: 048
  6. POMALYST [Suspect]
     Active Substance: POMALIDOMIDE
     Route: 048

REACTIONS (9)
  - Peripheral swelling [Unknown]
  - Off label use [Unknown]
  - Seasonal allergy [Not Recovered/Not Resolved]
  - Sinusitis [Recovering/Resolving]
  - Eye infection [Recovering/Resolving]
  - Cough [Recovering/Resolving]
  - Vertigo [Recovering/Resolving]
  - Joint swelling [Not Recovered/Not Resolved]
  - Dizziness [Unknown]

NARRATIVE: CASE EVENT DATE: 20240101
